FAERS Safety Report 8865336 (Version 2)
Quarter: 2013Q3

REPORT INFORMATION
  Report Type: Spontaneous
  Country: US (occurrence: US)
  Receive Date: 20121024
  Receipt Date: 20130930
  Transmission Date: 20140515
  Serious: No
  Sender: FDA-Public Use
  Company Number: US-AMGEN-USASP2012002382

PATIENT
  Age: 40 Year
  Sex: Female
  Weight: 69.84 kg

DRUGS (3)
  1. ENBREL [Suspect]
     Indication: RHEUMATOID ARTHRITIS
     Dosage: 50 MG, QWK
     Route: 058
     Dates: start: 20111212, end: 2012
  2. HUMIRA [Concomitant]
     Dosage: UNK
  3. CIMZIA [Concomitant]
     Dosage: UNK

REACTIONS (5)
  - Hypersensitivity [Recovered/Resolved]
  - Urticaria [Recovered/Resolved]
  - Sinusitis [Unknown]
  - Injection site erythema [Unknown]
  - Injection site swelling [Unknown]
